FAERS Safety Report 9349624 (Version 1)
Quarter: 2013Q2

REPORT INFORMATION
  Report Type: Spontaneous
  Country: US (occurrence: US)
  Receive Date: 20130614
  Receipt Date: 20130614
  Transmission Date: 20140414
  Serious: Yes (Death)
  Sender: FDA-Public Use
  Company Number: US-ELI_LILLY_AND_COMPANY-US201306003998

PATIENT
  Age: 45 Year
  Sex: Female

DRUGS (1)
  1. EFFIENT [Suspect]

REACTIONS (1)
  - Death [Fatal]
